FAERS Safety Report 25584075 (Version 1)
Quarter: 2025Q3

REPORT INFORMATION
  Report Type: Spontaneous
  Country: EU (occurrence: EU)
  Receive Date: 20250721
  Receipt Date: 20250721
  Transmission Date: 20251020
  Serious: Yes (Other)
  Sender: UCB
  Company Number: EU-UCBSA-2025044184

PATIENT
  Age: 19 Year
  Weight: 55 kg

DRUGS (1)
  1. FINTEPLA [Suspect]
     Active Substance: FENFLURAMINE
     Indication: Product used for unknown indication
     Dosage: 10 MILLILITER, 2X/DAY (BID)

REACTIONS (3)
  - Epilepsy [Unknown]
  - Sleep disorder [Unknown]
  - Overdose [Unknown]
